FAERS Safety Report 11448399 (Version 1)
Quarter: 2015Q3

REPORT INFORMATION
  Report Type: Spontaneous
  Country: US (occurrence: US)
  Receive Date: 20150831
  Receipt Date: 20150831
  Transmission Date: 20151125
  Serious: No
  Sender: FDA-Public Use
  Company Number: US-ELI_LILLY_AND_COMPANY-US200907001591

PATIENT
  Age: 49 Year
  Sex: Male

DRUGS (5)
  1. THYROID PREPARATIONS [Concomitant]
     Active Substance: UNSPECIFIED INGREDIENT
  2. VALTREX [Concomitant]
     Active Substance: VALACYCLOVIR HYDROCHLORIDE
     Indication: HERPES ZOSTER
  3. LYRICA [Concomitant]
     Active Substance: PREGABALIN
  4. CYMBALTA [Suspect]
     Active Substance: DULOXETINE HYDROCHLORIDE
     Indication: BACK PAIN
     Dosage: 120 MG, DAILY (1/D)
     Dates: start: 2007
  5. BYETTA [Concomitant]
     Active Substance: EXENATIDE

REACTIONS (4)
  - Musculoskeletal chest pain [Unknown]
  - Herpes zoster [Not Recovered/Not Resolved]
  - Rash [Unknown]
  - Stress fracture [Not Recovered/Not Resolved]

NARRATIVE: CASE EVENT DATE: 2009
